FAERS Safety Report 4594601-8 (Version None)
Quarter: 2005Q1

REPORT INFORMATION
  Report Type: 
  Country: None (occurrence: None)
  Receive Date: 20050301
  Receipt Date: 20040929
  Transmission Date: 20050727
  Serious: No
  Sender: FDA-Public Use
  Company Number: US-BRISTOL-MYERS SQUIBB COMPANY-12716684

PATIENT
  Sex: Female

DRUGS (2)
  1. ERBITUX [Suspect]
     Indication: COLON CANCER
     Dosage: 5TH INFUSION, LATER DOSE SKIPPED
     Route: 042
     Dates: start: 20040901, end: 20040901
  2. CPT-11 [Concomitant]

REACTIONS (1)
  - NAIL BED INFECTION [None]
